FAERS Safety Report 20814118 (Version 1)
Quarter: 2022Q2

REPORT INFORMATION
  Report Type: Spontaneous
  Country: US (occurrence: None)
  Receive Date: 20220510
  Receipt Date: 20220510
  Transmission Date: 20220720
  Serious: No
  Sender: FDA-Public Use
  Company Number: None

PATIENT
  Sex: Female

DRUGS (12)
  1. VIGABATRIN [Suspect]
     Active Substance: VIGABATRIN
     Indication: Epilepsy
     Dosage: FREQUENCY : TWICE A DAY;?
     Route: 048
  2. SABRIL [Concomitant]
     Active Substance: VIGABATRIN
  3. CLONAZEPAM [Concomitant]
     Active Substance: CLONAZEPAM
  4. AFINITOR DISPERZ [Concomitant]
     Active Substance: EVEROLIMUS
  5. LANSOPRAZOLE ODT [Concomitant]
  6. KEPPRA [Concomitant]
     Active Substance: LEVETIRACETAM
  7. DIASTAT PEDIATRIC [Concomitant]
  8. ZOFRAN [Concomitant]
     Active Substance: ONDANSETRON HYDROCHLORIDE
  9. OMEPRAZOLE [Concomitant]
     Active Substance: OMEPRAZOLE
  10. ONDANSETRON HYDROCHLORIDE [Concomitant]
     Active Substance: ONDANSETRON HYDROCHLORIDE
  11. SULFAMETHOXAZOLE/TRIMETHO [Concomitant]
  12. CLOBAZAM [Concomitant]
     Active Substance: CLOBAZAM

REACTIONS (2)
  - Seizure [None]
  - Product substitution issue [None]
